FAERS Safety Report 6243724-6 (Version None)
Quarter: 2009Q2

REPORT INFORMATION
  Report Type: 
  Country: None (occurrence: None)
  Receive Date: 20090624
  Receipt Date: 20090617
  Transmission Date: 20091009
  Serious: Yes (Hospitalization)
  Sender: FDA-Public Use
  Company Number: GB-SANOFI-SYNTHELABO-D01200703700

PATIENT
  Sex: Female

DRUGS (12)
  1. FLUOROURACIL [Suspect]
     Dosage: 400 MG/M?, IV BOLUS D1+D2 FOLLOWED BY 5-FU 2400 MG/M? OVER 46-HOUR CONTINUOUS INFUSION.
     Route: 042
     Dates: start: 20070531, end: 20070601
  2. LACTULOSE [Concomitant]
  3. TRAMADOL HCL [Concomitant]
  4. LORAZEPAM [Concomitant]
  5. LOSARTAN POTASSIUM [Concomitant]
  6. ONDANSETRON [Suspect]
     Route: 042
     Dates: start: 20070513, end: 20070513
  7. ONDANSETRON [Suspect]
     Dosage: AT 13:05 HOURS
     Route: 042
     Dates: start: 20070531, end: 20070531
  8. ONDANSETRON [Suspect]
     Dosage: AT 8AM AND 6PM
     Route: 048
     Dates: start: 20070601, end: 20070603
  9. SR57746 [Suspect]
     Indication: NEUROLOGICAL SYMPTOM
     Route: 048
     Dates: start: 20070531, end: 20070602
  10. LEUCOVORIN CALCIUM [Suspect]
     Route: 042
     Dates: start: 20070601, end: 20070601
  11. OXALIPLATIN [Suspect]
     Route: 042
     Dates: start: 20070531, end: 20070531
  12. DEXAMETHASONE [Concomitant]

REACTIONS (1)
  - TORSADE DE POINTES [None]
